FAERS Safety Report 8818586 (Version 2)
Quarter: 2012Q4

REPORT INFORMATION
  Report Type: 
  Country: JP (occurrence: JP)
  Receive Date: 20121001
  Receipt Date: 20121008
  Transmission Date: 20130627
  Serious: Yes (Hospitalization)
  Sender: FDA-Public Use
  Company Number: JP-PFIZER INC-2012239304

PATIENT
  Age: 46 Year
  Sex: Male

DRUGS (18)
  1. ZITHROMAC [Suspect]
     Indication: INFECTION PROPHYLAXIS
     Dosage: 500 mg, 1x/day
     Route: 048
  2. METHYCOBAL [Concomitant]
     Dosage: 1000 ug, 1x/day
     Route: 048
  3. GENTACIN [Concomitant]
     Dosage: UNK
     Route: 062
  4. SYMBICORT [Concomitant]
     Dosage: UNK
     Route: 055
  5. SP [Concomitant]
     Dosage: 1 mg, 1x/day
     Route: 048
  6. ROHYPNOL [Concomitant]
     Dosage: 1 mg, 1x/day
     Route: 048
  7. POLARAMINE [Concomitant]
     Dosage: 1 mg, 1x/day
     Route: 048
  8. MUCOSTA [Concomitant]
     Dosage: 300 mg, 1x/day
     Route: 048
  9. LOXONIN [Concomitant]
     Dosage: 180 mg, 1x/day
     Route: 048
  10. TRAMCET [Concomitant]
     Dosage: UNK
     Route: 048
     Dates: start: 201205
  11. SOLANTAL [Concomitant]
     Dosage: 100 mg, 1x/day
     Route: 048
  12. ASPARA [Concomitant]
     Dosage: 300 mg, 1x/day
     Route: 048
  13. ZEPOLAS [Concomitant]
     Dosage: 40 mg, 1x/day
  14. CRESTOR [Concomitant]
     Dosage: 5 mg, 1x/day
     Route: 048
  15. DEPAS [Concomitant]
     Dosage: 0.5 mg, 1x/day
     Route: 048
  16. HERBESSER [Concomitant]
     Dosage: UNK
     Route: 048
  17. ADALAT L [Concomitant]
     Dosage: 20 mg, 1x/day
  18. MYOCORIL [Concomitant]
     Dosage: UNK, as needed

REACTIONS (1)
  - Delirium [Recovering/Resolving]
